FAERS Safety Report 18190714 (Version 1)
Quarter: 2020Q3

REPORT INFORMATION
  Report Type: Spontaneous
  Country: PL (occurrence: PL)
  Receive Date: 20200824
  Receipt Date: 20200824
  Transmission Date: 20201103
  Serious: Yes (Other)
  Sender: FDA-Public Use
  Company Number: PL-ASTRAZENECA-2020SF03992

PATIENT
  Sex: Male

DRUGS (1)
  1. KETREL [Suspect]
     Active Substance: TRETINOIN
     Route: 048

REACTIONS (1)
  - Cerebral disorder [Unknown]
